FAERS Safety Report 14727222 (Version 1)
Quarter: 2018Q2

REPORT INFORMATION
  Report Type: Spontaneous
  Country: US (occurrence: US)
  Receive Date: 20180406
  Receipt Date: 20180406
  Transmission Date: 20180711
  Serious: No
  Sender: FDA-Public Use
  Company Number: US-BAYER-2018-057533

PATIENT
  Age: 5 Year
  Sex: Female
  Weight: 20 kg

DRUGS (1)
  1. MIRALAX [Suspect]
     Active Substance: POLYETHYLENE GLYCOL 3350
     Indication: GASTROINTESTINAL DISORDER
     Dosage: 0.5 DF, QD
     Route: 048
     Dates: start: 201802, end: 20180319

REACTIONS (7)
  - Obsessive-compulsive disorder [Not Recovered/Not Resolved]
  - Paranoia [Not Recovered/Not Resolved]
  - Off label use [Unknown]
  - Incorrect dose administered [Unknown]
  - Drug administered to patient of inappropriate age [Unknown]
  - Product prescribing issue [Unknown]
  - Product use issue [Unknown]

NARRATIVE: CASE EVENT DATE: 201802
